FAERS Safety Report 11036551 (Version 1)
Quarter: 2015Q2

REPORT INFORMATION
  Report Type: Spontaneous
  Country: US (occurrence: US)
  Receive Date: 20150416
  Receipt Date: 20150416
  Transmission Date: 20150821
  Serious: Yes (Other)
  Sender: FDA-Public Use
  Company Number: US-AUROBINDO-AUR-APU-2015-03241

PATIENT
  Sex: Male

DRUGS (1)
  1. CLOPIDOGREL [Suspect]
     Active Substance: CLOPIDOGREL BISULFATE
     Indication: PRODUCT USED FOR UNKNOWN INDICATION
     Dosage: 75 MG, ONCE A DAY
     Route: 065
     Dates: start: 20150227

REACTIONS (12)
  - Weight decreased [Unknown]
  - Cyanosis [Unknown]
  - Disturbance in attention [Unknown]
  - Visual impairment [Unknown]
  - Insomnia [Unknown]
  - Malaise [Unknown]
  - Gastrointestinal disorder [Unknown]
  - Presyncope [Unknown]
  - Pruritus [Unknown]
  - Rash [Unknown]
  - Decreased appetite [Unknown]
  - Somnolence [Unknown]
